FAERS Safety Report 8901067 (Version 2)
Quarter: 2012Q4

REPORT INFORMATION
  Report Type: 
  Country: US (occurrence: US)
  Receive Date: 20121109
  Receipt Date: 20121112
  Transmission Date: 20130627
  Serious: No
  Sender: FDA-Public Use
  Company Number: US-009507513-1208USA007664

PATIENT
  Sex: Female

DRUGS (5)
  1. PEGINTRON [Suspect]
     Indication: HEPATITIS C
     Dosage: Redipen
     Dates: start: 20120525
  2. REBETOL [Suspect]
     Indication: HEPATITIS C
     Dosage: UNK
     Dates: start: 20120525
  3. REBETOL [Suspect]
     Dosage: 4 DF, qd
  4. VICTRELIS [Suspect]
     Indication: HEPATITIS C
     Dosage: 0.5 UNK, UNK
     Dates: start: 20120623
  5. VICTRELIS [Suspect]
     Dosage: 0.4 UNK, UNK

REACTIONS (11)
  - Platelet count decreased [Unknown]
  - Urinary tract infection [Not Recovered/Not Resolved]
  - Eye discharge [Unknown]
  - Red blood cell count decreased [Unknown]
  - Haemoglobin decreased [Unknown]
  - Therapy cessation [Unknown]
  - Fatigue [Unknown]
  - Fatigue [Unknown]
  - Red blood cell count decreased [Unknown]
  - White blood cell count decreased [Unknown]
  - Platelet count decreased [Unknown]
